FAERS Safety Report 20141544 (Version 1)
Quarter: 2021Q4

REPORT INFORMATION
  Report Type: Spontaneous
  Country: US (occurrence: None)
  Receive Date: 20211202
  Receipt Date: 20211202
  Transmission Date: 20220303
  Serious: No
  Sender: FDA-Public Use
  Company Number: None

PATIENT
  Age: 41 Year
  Sex: Female
  Weight: 63 kg

DRUGS (3)
  1. SECRET OUTLAST PROTECTING DRY [Suspect]
     Active Substance: ALUMINUM CHLOROHYDRATE
     Indication: Hyperhidrosis
     Route: 061
  2. SECRET OUTLAST PROTECTING DRY [Suspect]
     Active Substance: ALUMINUM CHLOROHYDRATE
     Indication: Hyperhidrosis
  3. SECRET OUTLAST PROTECTING DRY [Suspect]
     Active Substance: ALUMINUM CHLOROHYDRATE
     Indication: Hyperhidrosis
     Route: 061

REACTIONS (2)
  - Cough [None]
  - Dyspnoea [None]
